FAERS Safety Report 8021921-7 (Version None)
Quarter: 2012Q1

REPORT INFORMATION
  Report Type: 
  Country: None (occurrence: None)
  Receive Date: 20120104
  Receipt Date: 20111230
  Transmission Date: 20120608
  Serious: Yes (Other)
  Sender: FDA-Public Use
  Company Number: US-BAYER-2012-000481

PATIENT
  Sex: Female

DRUGS (1)
  1. AVELOX [Suspect]

REACTIONS (5)
  - LOSS OF CONSCIOUSNESS [None]
  - ASTHENIA [None]
  - NERVOUSNESS [None]
  - URTICARIA [None]
  - SKIN BURNING SENSATION [None]
